FAERS Safety Report 20107334 (Version 3)
Quarter: 2022Q1

REPORT INFORMATION
  Report Type: Report from Study
  Country: DE (occurrence: DE)
  Receive Date: 20211124
  Receipt Date: 20220214
  Transmission Date: 20220423
  Serious: Yes (Hospitalization)
  Sender: FDA-Public Use
  Company Number: DE-TAKEDA-2021TUS070493

PATIENT
  Age: 58 Year
  Weight: 75 kg

DRUGS (6)
  1. ANTIHEMOPHILIC FACTOR, PEGYLATED (MW 20000) HUMAN SEQUENCE RECOMBINANT [Suspect]
     Active Substance: ANTIHEMOPHILIC FACTOR, PEGYLATED (MW 20000) HUMAN SEQUENCE RECOMBINANT
     Indication: Haemophilia
     Dosage: 2000 INTERNATIONAL UNIT, 2/WEEK
     Route: 042
     Dates: start: 20211012, end: 20211031
  2. ANTIHEMOPHILIC FACTOR, PEGYLATED (MW 20000) HUMAN SEQUENCE RECOMBINANT [Suspect]
     Active Substance: ANTIHEMOPHILIC FACTOR, PEGYLATED (MW 20000) HUMAN SEQUENCE RECOMBINANT
     Indication: Haemophilia
     Dosage: 2000 INTERNATIONAL UNIT, 2/WEEK
     Route: 042
     Dates: start: 20211012, end: 20211031
  3. ANTIHEMOPHILIC FACTOR, PEGYLATED (MW 20000) HUMAN SEQUENCE RECOMBINANT [Suspect]
     Active Substance: ANTIHEMOPHILIC FACTOR, PEGYLATED (MW 20000) HUMAN SEQUENCE RECOMBINANT
     Indication: Haemophilia
     Dosage: 2000 INTERNATIONAL UNIT, 2/WEEK
     Route: 042
     Dates: start: 20211012, end: 20211031
  4. HARVONI [Concomitant]
     Active Substance: LEDIPASVIR\SOFOSBUVIR
     Indication: Hepatitis C
     Dosage: UNK UNK, QD
     Route: 048
     Dates: start: 20150108
  5. Tranexamsaure tillomed [Concomitant]
     Indication: Hip arthroplasty
     Dosage: 1 GRAM, TID
     Route: 048
     Dates: start: 20211102, end: 20211104
  6. ENOXAPARIN SODIUM [Concomitant]
     Active Substance: ENOXAPARIN SODIUM
     Indication: Hip arthroplasty
     Dosage: 0.3 GRAM, QD
     Route: 058
     Dates: start: 20211102, end: 20211108

REACTIONS (1)
  - Osteoarthritis [Recovered/Resolved]

NARRATIVE: CASE EVENT DATE: 20211102
